FAERS Safety Report 10639643 (Version 2)
Quarter: 2014Q4

REPORT INFORMATION
  Report Type: Spontaneous
  Country: US (occurrence: US)
  Receive Date: 20141209
  Receipt Date: 20141217
  Transmission Date: 20150529
  Serious: No
  Sender: FDA-Public Use
  Company Number: US-009507513-1411USA007631

PATIENT

DRUGS (1)
  1. NEXPLANON [Suspect]
     Active Substance: ETONOGESTREL
     Dosage: UNK
     Route: 059
     Dates: start: 20141107

REACTIONS (4)
  - Device defective [Unknown]
  - No adverse event [Unknown]
  - Device difficult to use [Unknown]
  - Device deployment issue [Unknown]

NARRATIVE: CASE EVENT DATE: 20141107
